FAERS Safety Report 6374005-8 (Version None)
Quarter: 2009Q3

REPORT INFORMATION
  Report Type: 
  Country: None (occurrence: None)
  Receive Date: 20090924
  Receipt Date: 20090915
  Transmission Date: 20100115
  Serious: Yes (Other)
  Sender: FDA-Public Use
  Company Number: US-BAYER-200932222GPV

PATIENT
  Age: 28 Year
  Sex: Female

DRUGS (1)
  1. YASMIN [Suspect]
     Indication: MENORRHAGIA

REACTIONS (3)
  - DEEP VEIN THROMBOSIS [None]
  - MUSCLE SPASMS [None]
  - OEDEMA PERIPHERAL [None]
